FAERS Safety Report 16968575 (Version 1)
Quarter: 2019Q4

REPORT INFORMATION
  Report Type: Spontaneous
  Country: US (occurrence: US)
  Receive Date: 20191029
  Receipt Date: 20191029
  Transmission Date: 20200122
  Serious: Yes (Hospitalization, Other)
  Sender: FDA-Public Use
  Company Number: US-GLAND PHARMA LIMITED-2076108

PATIENT
  Sex: Female

DRUGS (4)
  1. VINCRISTINE [Suspect]
     Active Substance: VINCRISTINE
  2. DOXORUBICIN HYDROCHLORIDE. [Suspect]
     Active Substance: DOXORUBICIN HYDROCHLORIDE
     Indication: HEPATOBLASTOMA
  3. 5-FLUOROURACIL [Suspect]
     Active Substance: FLUOROURACIL
  4. CISPLATIN INJECTION [Suspect]
     Active Substance: CISPLATIN

REACTIONS (3)
  - Neutropenic colitis [Unknown]
  - Hyperbilirubinaemia [Unknown]
  - Renal failure [Unknown]
